FAERS Safety Report 6475073-5 (Version None)
Quarter: 2009Q4

REPORT INFORMATION
  Report Type: 
  Country: None (occurrence: None)
  Receive Date: 20091204
  Receipt Date: 20090518
  Transmission Date: 20100525
  Serious: Yes (Hospitalization)
  Sender: FDA-Public Use
  Company Number: US-ELI_LILLY_AND_COMPANY-US200903004433

PATIENT
  Sex: Female

DRUGS (18)
  1. FORTEO [Suspect]
     Indication: BONE DENSITY DECREASED
     Dosage: 20 UG, DAILY (1/D)
     Dates: start: 20081210
  2. NORVASC [Concomitant]
  3. RANEXA [Concomitant]
  4. PLAVIX [Concomitant]
     Dosage: 75 MG, UNK
  5. IMDUR [Concomitant]
  6. NITROGLYCERIN [Concomitant]
     Dosage: 0.4 MG, OTHER
     Route: 062
  7. PROTONIX [Concomitant]
     Dosage: 40 MG, UNK
  8. BABY ASPIRIN [Concomitant]
     Dosage: 81 MG, UNK
  9. TRAZODONE [Concomitant]
  10. ATACAND [Concomitant]
     Dosage: UNK, 4/W
  11. VITAMIN D3 [Concomitant]
     Dates: end: 20090101
  12. VITAMIN D3 [Concomitant]
     Dates: start: 20090101
  13. CALCIUM [Concomitant]
  14. MAGNESIUM [Concomitant]
  15. COENZYME Q10 [Concomitant]
  16. XANAX [Concomitant]
  17. RESTORIL [Concomitant]
  18. ZETIA [Concomitant]
     Dosage: 10 MG, UNK

REACTIONS (5)
  - BLOOD CALCIUM DECREASED [None]
  - BLOOD PRESSURE INCREASED [None]
  - C-REACTIVE PROTEIN INCREASED [None]
  - NON-CARDIAC CHEST PAIN [None]
  - VITAMIN D DECREASED [None]
